FAERS Safety Report 4802704-5 (Version None)
Quarter: 2005Q4

REPORT INFORMATION
  Report Type: 
  Country: None (occurrence: None)
  Receive Date: 20051014
  Receipt Date: 20050812
  Transmission Date: 20060501
  Serious: Yes (Other)
  Sender: FDA-Public Use
  Company Number: 2005114504

PATIENT
  Age: 51 Year
  Sex: Male
  Weight: 82.5547 kg

DRUGS (7)
  1. NEURONTIN [Suspect]
     Indication: INSOMNIA
     Dosage: (300MG, 1 D) ORAL
     Route: 048
     Dates: start: 20030101
  2. TRAZODONE HCL [Suspect]
     Indication: INSOMNIA
     Dosage: ORAL
     Route: 048
     Dates: end: 20050101
  3. ZOPLICONE (ZOPLICONE) [Suspect]
     Indication: INSOMNIA
     Dosage: (1 D) ORAL
     Route: 048
     Dates: end: 20050101
  4. COUMADIN [Concomitant]
  5. LAMICTAL [Concomitant]
  6. STARLIX [Concomitant]
  7. TENEX [Concomitant]

REACTIONS (12)
  - BLOOD PRESSURE DECREASED [None]
  - BLOOD PRESSURE ORTHOSTATIC INCREASED [None]
  - CHEST PAIN [None]
  - DEPRESSION [None]
  - DIPLOPIA [None]
  - DRUG INEFFECTIVE [None]
  - MEMORY IMPAIRMENT [None]
  - PALPITATIONS [None]
  - POSTURAL ORTHOSTATIC TACHYCARDIA SYNDROME [None]
  - TACHYPHYLAXIS [None]
  - TRANSIENT ISCHAEMIC ATTACK [None]
  - VENTRICULAR EXTRASYSTOLES [None]
